FAERS Safety Report 11934510 (Version 1)
Quarter: 2016Q1

REPORT INFORMATION
  Report Type: Spontaneous
  Country: None (occurrence: None)
  Receive Date: 20160120
  Receipt Date: 20160120
  Transmission Date: 20160526
  Serious: No
  Sender: FDA-Public Use
  Company Number: None

PATIENT
  Age: 42 Year

DRUGS (1)
  1. HUMIRA [Suspect]
     Active Substance: ADALIMUMAB
     Dosage: 1X EVERY 2 WEEKS, GIVEN INTO/UNDER THE SKIN

REACTIONS (3)
  - Fatigue [None]
  - Pain [None]
  - Influenza like illness [None]

NARRATIVE: CASE EVENT DATE: 20160108
